FAERS Safety Report 8418305-6 (Version None)
Quarter: 2012Q2

REPORT INFORMATION
  Report Type: 
  Country: None (occurrence: None)
  Receive Date: 20120607
  Receipt Date: 20120605
  Transmission Date: 20120825
  Serious: Yes (Hospitalization)
  Sender: FDA-Public Use
  Company Number: JP-ABBOTT-11P-087-0886801-00

PATIENT
  Sex: Male
  Weight: 41 kg

DRUGS (9)
  1. SULFAMETHOXAZOLE AND TRIMETHOPRIM [Concomitant]
     Indication: PROPHYLAXIS
     Route: 048
  2. HUMIRA [Suspect]
     Dates: start: 20110224, end: 20110224
  3. MESALAMINE [Concomitant]
     Indication: CROHN'S DISEASE
     Dosage: 1.5G DAILY
     Route: 048
  4. LANSOPRAZOLE [Concomitant]
     Indication: GASTRITIS PROPHYLAXIS
     Dosage: 15MG DAILY
     Route: 048
  5. SULFAMETHOXAZOLE AND TRIMETHOPRIM [Concomitant]
     Indication: PNEUMOCYSTIS JIROVECI PNEUMONIA
  6. HUMIRA [Suspect]
     Indication: CROHN'S DISEASE
     Route: 058
     Dates: start: 20110210, end: 20110210
  7. HUMIRA [Suspect]
     Dates: start: 20110306
  8. ALENDRONATE SODIUM [Concomitant]
     Indication: OSTEOPOROSIS PROPHYLAXIS
     Route: 048
  9. ATORVASTATIN CALCIUM [Concomitant]
     Indication: DYSLIPIDAEMIA
     Dosage: 10MG DAILY
     Route: 048
     Dates: start: 20110210

REACTIONS (2)
  - DEMYELINATING POLYNEUROPATHY [None]
  - GAIT DISTURBANCE [None]
